FAERS Safety Report 5746433-2 (Version None)
Quarter: 2008Q2

REPORT INFORMATION
  Report Type: 
  Country: None (occurrence: None)
  Receive Date: 20080520
  Receipt Date: 20080520
  Transmission Date: 20081010
  Serious: Yes (Other)
  Sender: FDA-Public Use
  Company Number: None

PATIENT
  Age: 43 Year
  Sex: Male
  Weight: 108.8633 kg

DRUGS (4)
  1. ICY HOT EXTRA STRENGTH DISTRIBUTED BY CHATTEM, INC [Suspect]
     Indication: BACK PAIN
     Dosage: ONE APPLICATION ONE TOP
     Route: 061
     Dates: start: 20080517, end: 20080517
  2. ICY HOT EXTRA STRENGTH DISTRIBUTED BY CHATTEM, INC [Suspect]
     Indication: MUSCULOSKELETAL PAIN
     Dosage: ONE APPLICATION ONE TOP
     Route: 061
     Dates: start: 20080517, end: 20080517
  3. ICY HOT EXTRA STRENGTH DISTRIBUTED BY CHATTEM, INC [Suspect]
     Indication: NECK PAIN
     Dosage: ONE APPLICATION ONE TOP
     Route: 061
     Dates: start: 20080517, end: 20080517
  4. ICY HOT EXTRA STRENGTH DISTRIBUTED BY CHATTEM, INC [Suspect]

REACTIONS (4)
  - BLISTER [None]
  - NO REACTION ON PREVIOUS EXPOSURE TO DRUG [None]
  - PAIN [None]
  - RASH [None]
